FAERS Safety Report 6405804-1 (Version None)
Quarter: 2009Q4

REPORT INFORMATION
  Report Type: 
  Country: None (occurrence: None)
  Receive Date: 20091019
  Receipt Date: 20091008
  Transmission Date: 20100525
  Serious: Yes (Other)
  Sender: FDA-Public Use
  Company Number: JP-BRISTOL-MYERS SQUIBB COMPANY-14784417

PATIENT
  Age: 37 Year
  Sex: Male

DRUGS (6)
  1. ABILIFY [Suspect]
     Indication: SCHIZOPHRENIA
     Dosage: 08JAN09-14JAN09:6 MG 15JAN09-28JAN09:12MG 29JAN09-02FEB09:18 MG 03FEB09-05FEB09:12 MG
     Route: 048
     Dates: start: 20090108, end: 20090205
  2. PZC [Concomitant]
  3. CONTOMIN [Concomitant]
  4. LEXOTAN [Concomitant]
  5. BENZALIN [Concomitant]
  6. PROMETHAZINE HCL [Concomitant]

REACTIONS (2)
  - DELUSION [None]
  - HALLUCINATION [None]
